FAERS Safety Report 8834252 (Version 2)
Quarter: 2013Q1

REPORT INFORMATION
  Report Type: Spontaneous
  Country: US (occurrence: US)
  Receive Date: 20121010
  Receipt Date: 20130219
  Transmission Date: 20140127
  Serious: Yes (Disabling, Other)
  Sender: FDA-Public Use
  Company Number: US-009507513-1210USA003137

PATIENT
  Sex: Female

DRUGS (1)
  1. FOSAMAX [Suspect]
     Dosage: UNK
     Route: 048
     Dates: end: 200812

REACTIONS (7)
  - Femur fracture [Unknown]
  - Hip fracture [Unknown]
  - Intramedullary rod insertion [Unknown]
  - Osteoporosis [Unknown]
  - Femur fracture [Unknown]
  - Femur fracture [Unknown]
  - Fall [Unknown]
